FAERS Safety Report 16879671 (Version 1)
Quarter: 2019Q4

REPORT INFORMATION
  Report Type: Spontaneous
  Country: US (occurrence: US)
  Receive Date: 20191003
  Receipt Date: 20191003
  Transmission Date: 20200122
  Serious: Yes (Hospitalization, Other)
  Sender: FDA-Public Use
  Company Number: US-GLAND PHARMA LIMITED-2075234

PATIENT
  Age: 59 Year
  Sex: Male

DRUGS (6)
  1. TICAGRELOR (TICAGRELOR) [Concomitant]
     Active Substance: TICAGRELOR
  2. TRANEXAMIC ACID. [Suspect]
     Active Substance: TRANEXAMIC ACID
     Indication: HIP ARTHROPLASTY
     Route: 040
  3. CANGRELOR (CANGRELOR) INFUSION [Concomitant]
  4. ASPIRIN 81 (ACETYLSALICYLIC ACID), 81 MG [Concomitant]
  5. METOPROLOL SUCCINATE. [Concomitant]
     Active Substance: METOPROLOL SUCCINATE
  6. ATORVASTATIN (ATORVASTATIN), 80 MG [Concomitant]

REACTIONS (3)
  - Acute myocardial infarction [Recovered/Resolved]
  - Product use in unapproved indication [Unknown]
  - Vascular stent thrombosis [Recovered/Resolved]
